FAERS Safety Report 24352043 (Version 3)
Quarter: 2024Q4

REPORT INFORMATION
  Report Type: Spontaneous
  Country: IT (occurrence: IT)
  Receive Date: 20240923
  Receipt Date: 20241121
  Transmission Date: 20250115
  Serious: Yes (Other)
  Sender: PFIZER
  Company Number: IT-PFIZER INC-PV202400122578

PATIENT
  Age: 23 Year
  Sex: Female

DRUGS (12)
  1. VINCRISTINE SULFATE [Suspect]
     Active Substance: VINCRISTINE SULFATE
     Indication: Primary mediastinal large B-cell lymphoma stage IV
     Dosage: UNK, CYCLIC, 2 CYCLES
     Dates: start: 201909, end: 201910
  2. VINCRISTINE SULFATE [Suspect]
     Active Substance: VINCRISTINE SULFATE
     Indication: Immunochemotherapy
  3. DOXORUBICIN HYDROCHLORIDE [Suspect]
     Active Substance: DOXORUBICIN HYDROCHLORIDE
     Indication: Primary mediastinal large B-cell lymphoma stage IV
     Dosage: UNK, CYCLIC, 2 CYCLES
     Dates: start: 201909, end: 201910
  4. DOXORUBICIN HYDROCHLORIDE [Suspect]
     Active Substance: DOXORUBICIN HYDROCHLORIDE
     Indication: Immunochemotherapy
  5. RITUXIMAB [Suspect]
     Active Substance: RITUXIMAB
     Indication: Primary mediastinal large B-cell lymphoma stage IV
     Dosage: UNK, CYCLIC, 2 CYCLES
     Dates: start: 201909, end: 201910
  6. RITUXIMAB [Suspect]
     Active Substance: RITUXIMAB
     Indication: Immunochemotherapy
  7. ETOPOSIDE [Suspect]
     Active Substance: ETOPOSIDE
     Indication: Primary mediastinal large B-cell lymphoma stage IV
     Dosage: DOSE-ADJUSTED, 2 CYCLES
     Dates: start: 201909, end: 201910
  8. ETOPOSIDE [Suspect]
     Active Substance: ETOPOSIDE
     Indication: Immunochemotherapy
  9. PREDNISONE [Suspect]
     Active Substance: PREDNISONE
     Indication: Primary mediastinal large B-cell lymphoma stage IV
     Dosage: UNK, CYCLIC, 2 CYCLES
     Dates: start: 201909, end: 201910
  10. PREDNISONE [Suspect]
     Active Substance: PREDNISONE
     Indication: Immunochemotherapy
  11. CYCLOPHOSPHAMIDE [Suspect]
     Active Substance: CYCLOPHOSPHAMIDE
     Indication: Primary mediastinal large B-cell lymphoma stage IV
     Dosage: UNK, CYCLIC, 2 CYCLES
     Dates: start: 201909, end: 201910
  12. CYCLOPHOSPHAMIDE [Suspect]
     Active Substance: CYCLOPHOSPHAMIDE
     Indication: Immunochemotherapy

REACTIONS (1)
  - Sinus bradycardia [Not Recovered/Not Resolved]

NARRATIVE: CASE EVENT DATE: 20191001
